FAERS Safety Report 22374653 (Version 1)
Quarter: 2023Q2

REPORT INFORMATION
  Report Type: Spontaneous
  Country: US (occurrence: US)
  Receive Date: 20230526
  Receipt Date: 20230526
  Transmission Date: 20230721
  Serious: Yes (Other)
  Sender: FDA-Public Use
  Company Number: US-TEVA-2023-US-2891216

PATIENT
  Age: 58 Year
  Sex: Male

DRUGS (1)
  1. CEPHALEXIN [Suspect]
     Active Substance: CEPHALEXIN
     Indication: Product used for unknown indication
     Route: 065

REACTIONS (12)
  - Limb deformity [Unknown]
  - Pyoderma [Unknown]
  - Joint swelling [Unknown]
  - Macule [Unknown]
  - Papule [Unknown]
  - Psoriasis [Unknown]
  - Poor quality sleep [Unknown]
  - Anxiety [Unknown]
  - Stress [Unknown]
  - Drug ineffective [Unknown]
  - Scab [Unknown]
  - Pustule [Unknown]
